FAERS Safety Report 25102951 (Version 1)
Quarter: 2025Q1

REPORT INFORMATION
  Report Type: Spontaneous
  Country: US (occurrence: US)
  Receive Date: 20250321
  Receipt Date: 20250321
  Transmission Date: 20250408
  Serious: Yes (Life-Threatening, Hospitalization, Other)
  Sender: RANBAXY
  Company Number: US-SUN PHARMACEUTICAL INDUSTRIES LTD-2025R1-499932

PATIENT
  Age: 56 Year
  Sex: Female

DRUGS (1)
  1. NIMODIPINE [Suspect]
     Active Substance: NIMODIPINE
     Indication: Hypoacusis
     Route: 065

REACTIONS (4)
  - Toxicity to various agents [Unknown]
  - Chronic hepatic failure [Recovering/Resolving]
  - Hypotension [Recovering/Resolving]
  - Bradycardia [Recovering/Resolving]
